FAERS Safety Report 12443694 (Version 1)
Quarter: 2016Q2

REPORT INFORMATION
  Report Type: Spontaneous
  Country: US (occurrence: US)
  Receive Date: 20160607
  Receipt Date: 20160607
  Transmission Date: 20160815
  Serious: No
  Sender: FDA-Public Use
  Company Number: US-PFIZER INC-2016283793

PATIENT
  Sex: Female

DRUGS (1)
  1. CRIZOTINIB [Suspect]
     Active Substance: CRIZOTINIB

REACTIONS (1)
  - Malaise [Unknown]
